FAERS Safety Report 17167201 (Version 1)
Quarter: 2019Q4

REPORT INFORMATION
  Report Type: Report from Study
  Country: None (occurrence: US)
  Receive Date: 20191217
  Receipt Date: 20191217
  Transmission Date: 20200122
  Serious: Yes (Hospitalization, Other)
  Sender: FDA-Public Use
  Company Number: US-ABBVIE-19K-163-2917516-00

PATIENT
  Sex: Female

DRUGS (2)
  1. HUMIRA [Suspect]
     Active Substance: ADALIMUMAB
     Indication: CROHN^S DISEASE
  2. HUMIRA [Suspect]
     Active Substance: ADALIMUMAB
     Indication: PSORIASIS
     Dosage: CITRATE FREE
     Route: 058

REACTIONS (16)
  - Liver disorder [Unknown]
  - Hepatomegaly [Unknown]
  - Splenomegaly [Unknown]
  - Nodule [Unknown]
  - Fall [Unknown]
  - Unresponsive to stimuli [Unknown]
  - Joint noise [Unknown]
  - Pain [Unknown]
  - Gastric disorder [Unknown]
  - Psoriasis [Unknown]
  - Synovial cyst [Unknown]
  - Blood glucose decreased [Recovered/Resolved]
  - Dizziness [Unknown]
  - Multi-organ disorder [Unknown]
  - Heart rate increased [Unknown]
  - Cardiac infection [Unknown]
